FAERS Safety Report 8772552 (Version 1)
Quarter: 2012Q4

REPORT INFORMATION
  Report Type: 
  Country: US (occurrence: US)
  Receive Date: 20120905
  Receipt Date: 20120905
  Transmission Date: 20130627
  Serious: Yes (Other)
  Sender: FDA-Public Use
  Company Number: US-PFIZER INC-2012215327

PATIENT
  Age: 62 Year
  Sex: Female
  Weight: 68.93 kg

DRUGS (1)
  1. LYRICA [Suspect]
     Indication: FIBROMYALGIA
     Dosage: 150 mg, 2x/day
     Dates: start: 2012

REACTIONS (2)
  - Weight increased [Unknown]
  - Blood cholesterol increased [Unknown]
